FAERS Safety Report 12703513 (Version 1)
Quarter: 2016Q3

REPORT INFORMATION
  Report Type: Spontaneous
  Country: US (occurrence: US)
  Receive Date: 20160831
  Receipt Date: 20160831
  Transmission Date: 20161109
  Serious: Yes (Other)
  Sender: FDA-Public Use
  Company Number: US-BAYER-2016-165392

PATIENT
  Sex: Female

DRUGS (1)
  1. MIRENA [Suspect]
     Active Substance: LEVONORGESTREL
     Dosage: 20 MCG/24HR, CONT
     Route: 015
     Dates: start: 201603

REACTIONS (5)
  - Vulvovaginal burning sensation [None]
  - Vulvovaginal discomfort [None]
  - Vulvovaginal rash [None]
  - Tinea cruris [None]
  - Vulvovaginal mycotic infection [None]

NARRATIVE: CASE EVENT DATE: 201603
